FAERS Safety Report 7379592-9 (Version None)
Quarter: 2011Q1

REPORT INFORMATION
  Report Type: 
  Country: None (occurrence: None)
  Receive Date: 20110329
  Receipt Date: 20091103
  Transmission Date: 20110831
  Serious: No
  Sender: FDA-Public Use
  Company Number: 2009BI035925

PATIENT
  Sex: Female

DRUGS (1)
  1. TYSABRI [Suspect]
     Indication: MULTIPLE SCLEROSIS
     Route: 042
     Dates: start: 20090903

REACTIONS (12)
  - COGNITIVE DISORDER [None]
  - BALANCE DISORDER [None]
  - FALL [None]
  - MEMORY IMPAIRMENT [None]
  - HEMIPLEGIA [None]
  - COCCYDYNIA [None]
  - VISUAL IMPAIRMENT [None]
  - WEIGHT DECREASED [None]
  - VOMITING [None]
  - DYSGRAPHIA [None]
  - AGRAPHIA [None]
  - DEPRESSION [None]
